FAERS Safety Report 10095638 (Version 3)
Quarter: 2015Q3

REPORT INFORMATION
  Report Type: Spontaneous
  Country: US (occurrence: US)
  Receive Date: 20140422
  Receipt Date: 20150812
  Transmission Date: 20151125
  Serious: No
  Sender: FDA-Public Use
  Company Number: US-GILEAD-2012-0061203

PATIENT
  Age: 53 Year
  Sex: Female

DRUGS (2)
  1. LETAIRIS [Suspect]
     Active Substance: AMBRISENTAN
     Indication: PULMONARY HYPERTENSION
     Dosage: 10 MG, UNK
     Route: 048
     Dates: start: 20120329
  2. TYVASO [Suspect]
     Active Substance: TREPROSTINIL

REACTIONS (5)
  - Cough [Unknown]
  - Fatigue [Unknown]
  - Pain in jaw [Unknown]
  - Oedema [Unknown]
  - Dry mouth [Unknown]
